FAERS Safety Report 5073617-1 (Version None)
Quarter: 2006Q2

REPORT INFORMATION
  Report Type: 
  Country: None (occurrence: None)
  Receive Date: 20060605
  Receipt Date: 20060524
  Transmission Date: 20061013
  Serious: Yes (Other)
  Sender: FDA-Public Use
  Company Number: 2006BH010347

PATIENT
  Age: 82 Year
  Sex: Female

DRUGS (4)
  1. GAMMAGARD S/D [Suspect]
     Indication: DEMENTIA ALZHEIMER'S TYPE
     Dosage: 0.4 GM; UNK; IV
     Route: 042
     Dates: start: 20040101, end: 20060523
  2. ACETAMINOPHEN [Concomitant]
  3. BENADRYL [Concomitant]
  4. ASPIRIN [Concomitant]

REACTIONS (12)
  - CAROTID ARTERY STENOSIS [None]
  - CEREBRAL ARTERY EMBOLISM [None]
  - CEREBRAL ATROPHY [None]
  - CEREBRAL INFARCTION [None]
  - CONFUSIONAL STATE [None]
  - DRUG DOSE OMISSION [None]
  - FACIAL PALSY [None]
  - FALL [None]
  - INFUSION RELATED REACTION [None]
  - THROMBOEMBOLIC STROKE [None]
  - UNRESPONSIVE TO VERBAL STIMULI [None]
  - URINARY INCONTINENCE [None]
